FAERS Safety Report 6447906-X (Version None)
Quarter: 2009Q4

REPORT INFORMATION
  Report Type: 
  Country: None (occurrence: None)
  Receive Date: 20091120
  Receipt Date: 20091110
  Transmission Date: 20100525
  Serious: Yes (Hospitalization)
  Sender: FDA-Public Use
  Company Number: FR-PFIZER INC-2009296573

PATIENT
  Sex: Female

DRUGS (1)
  1. SUTENT [Suspect]

REACTIONS (1)
  - PNEUMONIA PNEUMOCOCCAL [None]
